FAERS Safety Report 6207247-2 (Version None)
Quarter: 2009Q2

REPORT INFORMATION
  Report Type: 
  Country: None (occurrence: None)
  Receive Date: 20090528
  Receipt Date: 20090203
  Transmission Date: 20091009
  Serious: Yes (Life-Threatening)
  Sender: FDA-Public Use
  Company Number: FR-PFIZER INC-2009166248

PATIENT
  Sex: Male

DRUGS (6)
  1. SOLU-MEDROL [Suspect]
     Dosage: UNK
     Route: 042
     Dates: start: 20081231
  2. PACLITAXEL [Suspect]
     Indication: METASTATIC BRONCHIAL CARCINOMA
     Dosage: 300 MG, UNK
     Route: 042
     Dates: start: 20081231, end: 20081231
  3. ONDANSETRON [Suspect]
     Dosage: 8 MG, UNK
     Route: 042
     Dates: start: 20081231, end: 20081231
  4. AZANTAC [Suspect]
     Dosage: 50 MG, UNK
     Route: 042
     Dates: start: 20081231, end: 20081231
  5. POLARAMINE [Suspect]
     Route: 042
     Dates: start: 20081231
  6. CARBOPLATIN [Concomitant]
     Indication: METASTATIC BRONCHIAL CARCINOMA
     Dosage: UNK

REACTIONS (2)
  - ABDOMINAL PAIN [None]
  - MALAISE [None]
